FAERS Safety Report 17886229 (Version 1)
Quarter: 2020Q2

REPORT INFORMATION
  Report Type: Spontaneous
  Country: US (occurrence: US)
  Receive Date: 20200611
  Receipt Date: 20200611
  Transmission Date: 20200714
  Serious: No
  Sender: FDA-Public Use
  Company Number: US-GUERBET-US-20200055

PATIENT
  Age: 24 Year
  Sex: Female
  Weight: 69.3 kg

DRUGS (1)
  1. DOTAREM [Suspect]
     Active Substance: GADOTERATE MEGLUMINE
     Indication: MAGNETIC RESONANCE IMAGING BRAIN
     Route: 065
     Dates: start: 20200226, end: 20200226

REACTIONS (6)
  - Rash macular [Unknown]
  - Dizziness [Unknown]
  - Hyperhidrosis [Unknown]
  - Flushing [Unknown]
  - Chest discomfort [Unknown]
  - Feeling hot [Unknown]

NARRATIVE: CASE EVENT DATE: 20200226
